FAERS Safety Report 19113043 (Version 1)
Quarter: 2021Q2

REPORT INFORMATION
  Report Type: Report from Study
  Country: GR (occurrence: GR)
  Receive Date: 20210408
  Receipt Date: 20210408
  Transmission Date: 20210717
  Serious: Yes (Death, Other)
  Sender: FDA-Public Use
  Company Number: GR-PFIZER INC-2021372353

PATIENT

DRUGS (3)
  1. PACLITAXEL. [Suspect]
     Active Substance: PACLITAXEL
     Indication: NON-SMALL CELL LUNG CANCER STAGE III
     Dosage: 45 MG/M2,OVER 1 HOUR
     Route: 042
  2. VELIPARIB [Suspect]
     Active Substance: VELIPARIB
     Indication: NON-SMALL CELL LUNG CANCER STAGE III
  3. CARBOPLATIN. [Suspect]
     Active Substance: CARBOPLATIN
     Indication: NON-SMALL CELL LUNG CANCER STAGE III
     Dosage: OVER 30 MINUTES ONCE WEEKLY DURING RT,
     Route: 042

REACTIONS (2)
  - Oesophageal stenosis [Fatal]
  - Oesophageal perforation [Fatal]
